FAERS Safety Report 12269534 (Version 1)
Quarter: 2016Q2

REPORT INFORMATION
  Report Type: Spontaneous
  Country: AT (occurrence: AT)
  Receive Date: 20160414
  Receipt Date: 20160414
  Transmission Date: 20160815
  Serious: Yes (Life-Threatening)
  Sender: FDA-Public Use
  Company Number: AT-BAYER-2016-071261

PATIENT
  Age: 50 Year
  Sex: Female

DRUGS (1)
  1. ULTRAVIST [Suspect]
     Active Substance: IOPROMIDE
     Indication: NUCLEAR MAGNETIC RESONANCE IMAGING
     Dosage: 100 ML, UNK
     Dates: start: 20160329, end: 20160329

REACTIONS (6)
  - Discomfort [Recovered/Resolved]
  - Eyelid oedema [Recovered/Resolved]
  - Sensation of foreign body [Recovered/Resolved]
  - Erythema [Recovered/Resolved]
  - Anaphylactic reaction [Recovered/Resolved]
  - Pruritus [Recovered/Resolved]

NARRATIVE: CASE EVENT DATE: 20160329
